FAERS Safety Report 9742496 (Version 2)
Quarter: 2014Q1

REPORT INFORMATION
  Report Type: Report from Study
  Country: BR (occurrence: BR)
  Receive Date: 20131210
  Receipt Date: 20140108
  Transmission Date: 20141002
  Serious: Yes (Other)
  Sender: FDA-Public Use
  Company Number: PHHY2013BR144209

PATIENT
  Sex: Male
  Weight: 81 kg

DRUGS (3)
  1. DIOVAN AMLO FIX [Suspect]
     Indication: HYPERTENSION
     Dosage: 1 DF, QD ONCE A DAY
     Route: 048
  2. GLIMEPIRIDE [Concomitant]
     Indication: DIABETES MELLITUS
     Dosage: 2 MG, UNK
  3. PANTOPRAZOLE [Concomitant]
     Indication: ABDOMINAL DISCOMFORT
     Dosage: 1 DF, A DAY
     Route: 048
     Dates: start: 20131106

REACTIONS (3)
  - Venous occlusion [Unknown]
  - Angina unstable [Recovered/Resolved]
  - Blood pressure decreased [Recovering/Resolving]
